FAERS Safety Report 8453511-6 (Version None)
Quarter: 2012Q2

REPORT INFORMATION
  Report Type: 
  Country: None (occurrence: None)
  Receive Date: 20120620
  Receipt Date: 20120522
  Transmission Date: 20120825
  Serious: No
  Sender: FDA-Public Use
  Company Number: US-VERTEX PHARMACEUTICALS INC.-AE-2012-007491

PATIENT
  Sex: Male

DRUGS (9)
  1. TOPRAMAX [Concomitant]
  2. OXCARBAZEPINE [Concomitant]
  3. INCIVEK [Suspect]
     Indication: HEPATITIS C
     Route: 048
     Dates: start: 20120501
  4. RIBASPHERE [Concomitant]
     Indication: HEPATITIS C
     Route: 048
     Dates: start: 20120501
  5. RISPERIDONE [Concomitant]
  6. VIVITROL [Concomitant]
     Route: 030
  7. HYDROXYZINE [Concomitant]
  8. PROPRANOLOL [Concomitant]
  9. PEGASYS [Concomitant]
     Indication: HEPATITIS C
     Route: 058
     Dates: start: 20120501

REACTIONS (6)
  - ASTHENIA [None]
  - RASH [None]
  - DIARRHOEA [None]
  - ANORECTAL DISCOMFORT [None]
  - RECTAL HAEMORRHAGE [None]
  - DEHYDRATION [None]
